FAERS Safety Report 10645259 (Version 1)
Quarter: 2014Q4

REPORT INFORMATION
  Report Type: Spontaneous
  Country: US (occurrence: None)
  Receive Date: 20141210
  Receipt Date: 20141210
  Transmission Date: 20150529
  Serious: No
  Sender: FDA-Public Use
  Company Number: None

PATIENT
  Age: 91 Year
  Sex: Female

DRUGS (1)
  1. CAPECITABINE. [Suspect]
     Active Substance: CAPECITABINE
     Indication: COLON CANCER
     Dosage: 1500 MG BID 1 WK ON 1 WK OFF PO
     Route: 048
     Dates: start: 20140723, end: 20141201

REACTIONS (3)
  - Pain in extremity [None]
  - Skin fissures [None]
  - Nail disorder [None]

NARRATIVE: CASE EVENT DATE: 201411
